FAERS Safety Report 8153104-4 (Version None)
Quarter: 2012Q1

REPORT INFORMATION
  Report Type: 
  Country: None (occurrence: None)
  Receive Date: 20120221
  Receipt Date: 20120212
  Transmission Date: 20120608
  Serious: Yes (Death, Life-Threatening, Other)
  Sender: FDA-Public Use
  Company Number: JP-ASTELLAS-2011US007753

PATIENT
  Sex: Male
  Weight: 41 kg

DRUGS (18)
  1. GEMCITABINE [Suspect]
     Dosage: 800 MG/M2, X1
     Route: 041
     Dates: start: 20111006, end: 20111006
  2. RABEPRAZOLE SODIUM [Concomitant]
     Indication: PRODUCT USED FOR UNKNOWN INDICATION
     Dosage: 10 MG, UID/QD
     Route: 048
     Dates: start: 20111005, end: 20110101
  3. FENTANYL CITRATE [Concomitant]
     Indication: PRODUCT USED FOR UNKNOWN INDICATION
     Dosage: 2 MG, UID/QD
     Route: 062
     Dates: start: 20111104, end: 20111119
  4. DIAZEPAM [Concomitant]
     Indication: PRODUCT USED FOR UNKNOWN INDICATION
     Dosage: 2.5 MG, UID/QD
     Route: 048
     Dates: start: 20111104, end: 20111109
  5. FUNGIZONE [Concomitant]
     Indication: PRODUCT USED FOR UNKNOWN INDICATION
     Dosage: 100 MG, UID/QD
     Route: 048
     Dates: start: 20111116, end: 20111101
  6. OXINORM [Concomitant]
     Indication: PRODUCT USED FOR UNKNOWN INDICATION
     Dosage: 2.5 MG, UID/QD
     Route: 048
     Dates: start: 20111104, end: 20111119
  7. NOVAMIN [Concomitant]
     Indication: PRODUCT USED FOR UNKNOWN INDICATION
     Dosage: 5 MG, UID/QD
     Route: 048
     Dates: start: 20111102, end: 20111119
  8. MORPHINE [Concomitant]
     Indication: PRODUCT USED FOR UNKNOWN INDICATION
     Dosage: 5 MG, UID/QD
     Route: 048
     Dates: start: 20111103, end: 20111113
  9. GEMCITABINE [Suspect]
     Indication: ADENOCARCINOMA PANCREAS
     Dosage: 800 MG/M2, X1
     Route: 041
     Dates: start: 20110908, end: 20110908
  10. DIOVAN [Concomitant]
     Indication: PRODUCT USED FOR UNKNOWN INDICATION
     Dosage: 80 MG, UID/QD
     Route: 048
     Dates: start: 20111104, end: 20111119
  11. CASODEX [Concomitant]
     Indication: PRODUCT USED FOR UNKNOWN INDICATION
     Dosage: 80 MG, UID/QD
     Route: 048
     Dates: start: 20051201, end: 20111031
  12. LEUPROLIDE ACETATE [Concomitant]
     Indication: PRODUCT USED FOR UNKNOWN INDICATION
     Dosage: 11.25 MG, 1 IN 3 M, OTHER
     Route: 058
     Dates: start: 20051201, end: 20111021
  13. RISPERDAL [Concomitant]
     Indication: PRODUCT USED FOR UNKNOWN INDICATION
     Dosage: 2 MG, UID/QD
     Route: 048
     Dates: start: 20111112, end: 20111119
  14. ERLOTINIB HYDROCHLORIDE [Suspect]
     Indication: ADENOCARCINOMA PANCREAS
     Dosage: 100 MG, UID/QD
     Route: 048
     Dates: start: 20110908, end: 20111101
  15. SULFAMETHOXAZOLE [Concomitant]
     Indication: PRODUCT USED FOR UNKNOWN INDICATION
     Dosage: 4 G, UID/QD
     Route: 048
     Dates: start: 20111110, end: 20111119
  16. DEPAS [Concomitant]
     Indication: PRODUCT USED FOR UNKNOWN INDICATION
     Dosage: 0.5 MG, UID/QD
     Route: 048
     Dates: start: 20111112, end: 20111119
  17. MORPHINE [Concomitant]
     Indication: PRODUCT USED FOR UNKNOWN INDICATION
     Dosage: 20 MG, UID/QD
     Route: 048
     Dates: start: 20111102, end: 20111103
  18. MAGMITT [Concomitant]
     Indication: PRODUCT USED FOR UNKNOWN INDICATION
     Dosage: 500 MG, UID/QD
     Route: 048
     Dates: start: 20111102, end: 20111109

REACTIONS (15)
  - ANAEMIA [None]
  - BONE MARROW TOXICITY [None]
  - INTERSTITIAL LUNG DISEASE [None]
  - DECREASED APPETITE [None]
  - CARDIAC FAILURE [None]
  - RENAL FAILURE [None]
  - CONSTIPATION [None]
  - DYSGEUSIA [None]
  - ACIDOSIS [None]
  - MALAISE [None]
  - ACUTE RESPIRATORY DISTRESS SYNDROME [None]
  - CHEILITIS [None]
  - RASH [None]
  - DISSEMINATED INTRAVASCULAR COAGULATION [None]
  - SEPSIS [None]
